FAERS Safety Report 7308519-0 (Version None)
Quarter: 2011Q1

REPORT INFORMATION
  Report Type: 
  Country: None (occurrence: None)
  Receive Date: 20110211
  Receipt Date: 20110127
  Transmission Date: 20110831
  Serious: Yes (Life-Threatening, Hospitalization)
  Sender: FDA-Public Use
  Company Number: 2010001383

PATIENT
  Age: 58 Year
  Sex: Male
  Weight: 50 kg

DRUGS (27)
  1. VALSARTAN [Concomitant]
  2. DEPAS (ETIZOLAM) [Concomitant]
  3. ADONA (CARBAZOCHROME SODIUM SULFONATE) [Concomitant]
  4. UNASYN [Concomitant]
  5. LEVOFLOXACIN [Concomitant]
  6. ZOMETA [Concomitant]
  7. FENTANYL [Concomitant]
  8. ERLOTINIB HYDROCHLORIDE [Suspect]
     Indication: LUNG ADENOCARCINOMA
     Dosage: (100 MG,QD),ORAL
     Route: 048
     Dates: start: 20080623, end: 20090508
  9. TAZOCIN (PIP/TAZO) [Concomitant]
  10. LIPITOR [Concomitant]
  11. MS CONTIN [Concomitant]
  12. MORPHINE [Concomitant]
  13. BUP-4 (PROPIVERINE HYDROCHLORIDE) [Concomitant]
  14. PROTECADIN [Concomitant]
  15. TAKEPRON (LANSOPRAZOLE) [Concomitant]
  16. GARENOXACIN MESILATE (TABLET) [Suspect]
     Indication: BACTERIAL INFECTION
     Dosage: ORAL
     Route: 048
     Dates: start: 20081006, end: 20081009
  17. AMARYL [Concomitant]
  18. TAMSULOSIN HYDROCHLORIDE [Concomitant]
  19. KENALOG [Concomitant]
  20. PRIMPERAN TAB [Concomitant]
  21. DICLOFENAC (DICLOFENAC) [Concomitant]
  22. CODEINE PHOSPHATE (CODEINE PHOSPHATE) [Concomitant]
  23. GLUCOBAY [Concomitant]
  24. ZOLPIDEM TARTRATE [Concomitant]
  25. OMEPRAZOLE [Concomitant]
  26. KAKKON-TO (KAKKON-TO) [Concomitant]
  27. BANAN [Concomitant]

REACTIONS (10)
  - STOMATITIS [None]
  - BRONCHITIS [None]
  - RASH [None]
  - CONJUNCTIVITIS [None]
  - CHRONIC HEPATITIS [None]
  - CHOLECYSTITIS [None]
  - HAEMOPTYSIS [None]
  - LUNG NEOPLASM MALIGNANT [None]
  - BACTERIAL INFECTION [None]
  - REFLUX OESOPHAGITIS [None]
